FAERS Safety Report 8408308-X (Version None)
Quarter: 2012Q2

REPORT INFORMATION
  Report Type: 
  Country: None (occurrence: None)
  Receive Date: 20120604
  Receipt Date: 20120521
  Transmission Date: 20120825
  Serious: No
  Sender: FDA-Public Use
  Company Number: US-ASTRAZENECA-2012SE13585

PATIENT
  Age: 64 Year
  Sex: Female
  Weight: 73.9 kg

DRUGS (5)
  1. LISINOPRIL [Suspect]
     Route: 048
  2. ADDERALL 5 [Suspect]
     Route: 065
  3. RITALIN [Suspect]
     Route: 065
  4. TOPROL-XL [Suspect]
     Indication: HYPERTENSION
     Dosage: GENERIC
     Route: 048
     Dates: start: 20100401
  5. AMLODIPINE [Concomitant]

REACTIONS (4)
  - DRUG INEFFECTIVE [None]
  - LABILE HYPERTENSION [None]
  - BLOOD PRESSURE INCREASED [None]
  - INTENTIONAL DRUG MISUSE [None]
